FAERS Safety Report 19399000 (Version 1)
Quarter: 2021Q2

REPORT INFORMATION
  Report Type: Spontaneous
  Country: US (occurrence: US)
  Receive Date: 20210610
  Receipt Date: 20210610
  Transmission Date: 20210717
  Serious: No
  Sender: FDA-Public Use
  Company Number: None

PATIENT
  Sex: Female

DRUGS (2)
  1. CAPECITABINE 500MG NOVADDOZ PHARMACEITOCA;S [Suspect]
     Active Substance: CAPECITABINE
     Indication: RECTAL CANCER
     Route: 048
     Dates: start: 2016
  2. LYNPARZA [Concomitant]
     Active Substance: OLAPARIB

REACTIONS (2)
  - Drug ineffective [None]
  - Therapy cessation [None]
